FAERS Safety Report 6963727-3 (Version None)
Quarter: 2010Q3

REPORT INFORMATION
  Report Type: 
  Country: None (occurrence: None)
  Receive Date: 20100902
  Receipt Date: 20100826
  Transmission Date: 20110219
  Serious: Yes (Other)
  Sender: FDA-Public Use
  Company Number: US-AMGEN-QUU434131

PATIENT
  Sex: Female

DRUGS (1)
  1. NPLATE [Suspect]
     Indication: IDIOPATHIC THROMBOCYTOPENIC PURPURA
     Dates: start: 20090821, end: 20091016

REACTIONS (5)
  - BLOOD BLISTER [None]
  - EPISTAXIS [None]
  - PLATELET COUNT ABNORMAL [None]
  - RASH [None]
  - SINUSITIS [None]
